FAERS Safety Report 8116860-7 (Version None)
Quarter: 2012Q1

REPORT INFORMATION
  Report Type: 
  Country: None (occurrence: None)
  Receive Date: 20120206
  Receipt Date: 20120202
  Transmission Date: 20120608
  Serious: Yes (Hospitalization, Other)
  Sender: FDA-Public Use
  Company Number: PHFR2003IE04391

PATIENT
  Sex: Female

DRUGS (12)
  1. LORAZEPAM [Concomitant]
     Indication: PSYCHOTIC DISORDER
     Dosage: 2 MG
     Route: 048
  2. CHLORPROMAZINE HCL [Concomitant]
     Indication: PSYCHOTIC DISORDER
     Dosage: 100 MG, PRN
     Route: 048
  3. PRILOSEC [Concomitant]
     Dosage: 30 MG, UNK
     Route: 048
  4. CLOZARIL [Suspect]
     Indication: SCHIZOPHRENIA, PARANOID TYPE
     Route: 048
     Dates: start: 20001204, end: 20110617
  5. OXYCONTIN [Concomitant]
     Dosage: 20 MG
     Route: 048
  6. COMBIVENT [Concomitant]
     Dosage: UNK
  7. CALCIUM CARBONATE [Concomitant]
     Dosage: 70 MG, DAILY
     Route: 048
  8. OXYCODONE HCL [Concomitant]
     Dosage: 5 MG, DAILY
  9. OLANZAPINE [Concomitant]
     Indication: PSYCHOTIC DISORDER
     Dosage: 15 MG DAILY
     Route: 048
  10. CLOZARIL [Suspect]
     Dosage: 300 MG, QD
     Route: 048
     Dates: start: 20110727
  11. CLOZARIL [Suspect]
     Dosage: 200 MG, DAILY
     Route: 048
  12. ZOPICLONE [Concomitant]
     Dosage: 75 MG, DAILY

REACTIONS (20)
  - BREAST CANCER [None]
  - METASTASES TO LUNG [None]
  - HAEMOGLOBIN DECREASED [None]
  - TERMINAL STATE [None]
  - METASTASES TO BONE [None]
  - RED BLOOD CELL COUNT DECREASED [None]
  - BLOOD ALKALINE PHOSPHATASE INCREASED [None]
  - ANTIPSYCHOTIC DRUG LEVEL INCREASED [None]
  - METASTASES TO LIVER [None]
  - METASTASES TO BONE MARROW [None]
  - NEOPLASM MALIGNANT [None]
  - NEUTROPHIL COUNT INCREASED [None]
  - LYMPHOCYTE COUNT DECREASED [None]
  - MALAISE [None]
  - METASTASIS [None]
  - LEUKOERYTHROBLASTIC ANAEMIA [None]
  - WHITE BLOOD CELL COUNT INCREASED [None]
  - WHITE BLOOD CELL COUNT DECREASED [None]
  - HAEMATOCRIT DECREASED [None]
  - NEUTROPHIL COUNT DECREASED [None]
